FAERS Safety Report 19243795 (Version 2)
Quarter: 2021Q2

REPORT INFORMATION
  Report Type: Spontaneous
  Country: JP (occurrence: JP)
  Receive Date: 20210511
  Receipt Date: 20210513
  Transmission Date: 20210717
  Serious: Yes (Life-Threatening)
  Sender: FDA-Public Use
  Company Number: JP-ASTRAZENECA-2020SF33399

PATIENT
  Age: 85 Year
  Sex: Male

DRUGS (3)
  1. ETOPOSIDE. [Concomitant]
     Active Substance: ETOPOSIDE
     Indication: SMALL CELL LUNG CANCER
     Dosage: DOSE UNKNOWN, ON DAY 1, 2 AND 3 OF EACH CYCLE
     Route: 041
     Dates: start: 20201007
  2. CARBOPLATIN. [Concomitant]
     Active Substance: CARBOPLATIN
     Indication: SMALL CELL LUNG CANCER
     Dosage: EVERY THREE WEEKS
     Route: 041
  3. IMFINZI [Suspect]
     Active Substance: DURVALUMAB
     Indication: SMALL CELL LUNG CANCER
     Route: 041
     Dates: start: 20201007

REACTIONS (3)
  - Neutrophil count decreased [Unknown]
  - Clostridium difficile colitis [Unknown]
  - Infusion related reaction [Recovered/Resolved]

NARRATIVE: CASE EVENT DATE: 20201007
